FAERS Safety Report 14551368 (Version 1)
Quarter: 2018Q1

REPORT INFORMATION
  Report Type: Spontaneous
  Country: US (occurrence: US)
  Receive Date: 20180220
  Receipt Date: 20180220
  Transmission Date: 20180509
  Serious: Yes (Hospitalization, Other)
  Sender: FDA-Public Use
  Company Number: US-VISTAPHARM, INC.-VER201802-000400

PATIENT
  Age: 22 Year
  Sex: Male

DRUGS (3)
  1. PHENYTOIN. [Suspect]
     Active Substance: PHENYTOIN
     Indication: SEIZURE
  2. ACETAMINOPHEN. [Suspect]
     Active Substance: ACETAMINOPHEN
     Indication: SUICIDE ATTEMPT
  3. IBUPROFEN. [Concomitant]
     Active Substance: IBUPROFEN
     Indication: SUICIDE ATTEMPT

REACTIONS (7)
  - Drug effect increased [Unknown]
  - Acute hepatic failure [Unknown]
  - Hepatic encephalopathy [Unknown]
  - Drug interaction [Unknown]
  - Hepatotoxicity [Unknown]
  - Acute kidney injury [Recovered/Resolved]
  - Hepatic necrosis [Unknown]
